FAERS Safety Report 6640568-8 (Version None)
Quarter: 2010Q1

REPORT INFORMATION
  Report Type: 
  Country: None (occurrence: None)
  Receive Date: 20100318
  Receipt Date: 20100311
  Transmission Date: 20100710
  Serious: Yes (Other)
  Sender: FDA-Public Use
  Company Number: GB-ABBOTT-07P-167-0376507-00

PATIENT
  Age: 40 Year
  Sex: Male

DRUGS (13)
  1. NORVIR [Suspect]
     Indication: HIV INFECTION
     Dates: start: 20070416
  2. NORVIR [Suspect]
     Indication: PATHOGEN RESISTANCE
  3. DARUNAVIR [Suspect]
     Indication: PATHOGEN RESISTANCE
     Dates: start: 20070416
  4. DARUNAVIR [Suspect]
     Indication: HIV INFECTION
  5. RALTEGRAVIR POTASSIUM [Suspect]
     Indication: HIV INFECTION
     Dates: start: 20070416
  6. COMBIVIR [Concomitant]
     Indication: HIV INFECTION
     Dates: start: 20070416
  7. COMBIVIR [Concomitant]
     Indication: PATHOGEN RESISTANCE
  8. AZITHROMYCIN [Concomitant]
     Indication: HIV INFECTION
     Dates: start: 20020101
  9. AZITHROMYCIN [Concomitant]
     Indication: PATHOGEN RESISTANCE
  10. DAPSONE [Concomitant]
     Indication: HIV INFECTION
     Dates: start: 20020101
  11. DAPSONE [Concomitant]
     Indication: PATHOGEN RESISTANCE
  12. TENOFOVIR DISOPROXIL FUMARATE [Concomitant]
     Indication: HIV INFECTION
     Dates: start: 20070416
  13. TENOFOVIR DISOPROXIL FUMARATE [Concomitant]
     Indication: PATHOGEN RESISTANCE

REACTIONS (5)
  - ARTHRALGIA [None]
  - CHONDROCALCINOSIS PYROPHOSPHATE [None]
  - ERYTHEMA [None]
  - LOCAL SWELLING [None]
  - PAIN [None]
